FAERS Safety Report 18338453 (Version 1)
Quarter: 2020Q4

REPORT INFORMATION
  Report Type: Spontaneous
  Country: US (occurrence: US)
  Receive Date: 20201001
  Receipt Date: 20201001
  Transmission Date: 20210113
  Serious: Yes (Life-Threatening, Hospitalization)
  Sender: FDA-Public Use
  Company Number: None

PATIENT
  Age: 57 Year
  Sex: Male
  Weight: 78.02 kg

DRUGS (4)
  1. MORPHINE [Suspect]
     Active Substance: MORPHINE
  2. CIALIS [Concomitant]
     Active Substance: TADALAFIL
  3. DRUG INFUSION SYSTEM [Suspect]
     Active Substance: DEVICE
     Dates: start: 20140409, end: 20200921
  4. ACIPHEX [Concomitant]
     Active Substance: RABEPRAZOLE SODIUM

REACTIONS (3)
  - Drug ineffective [None]
  - Drug withdrawal syndrome [None]
  - Device malfunction [None]

NARRATIVE: CASE EVENT DATE: 20200911
